FAERS Safety Report 7434799-7 (Version None)
Quarter: 2011Q2

REPORT INFORMATION
  Report Type: 
  Country: None (occurrence: None)
  Receive Date: 20110415
  Receipt Date: 20110331
  Transmission Date: 20111010
  Serious: Yes (Hospitalization)
  Sender: FDA-Public Use
  Company Number: 20110252

PATIENT
  Age: 83 Year
  Sex: Male

DRUGS (14)
  1. VENOFER [Suspect]
     Dosage: 200 MG INTRAVENOUS DRIP
     Route: 041
     Dates: start: 20110128, end: 20110128
  2. LANSOYL (PARRAFIN) [Concomitant]
  3. LEVOTHYROX (LEVOTHYROXINE) [Concomitant]
  4. SPIRIVA [Concomitant]
  5. ASPIRIN [Concomitant]
  6. CALCIUM [Concomitant]
  7. BECILAN (PYRIDOXINE) [Concomitant]
  8. COUMADIN [Concomitant]
  9. SYMBICORT (BUDESONIDE AND FORMOTEROL) [Concomitant]
  10. FUROSEMIDE [Concomitant]
  11. BENERVA (THIAMINE) [Concomitant]
  12. OXYCODONE HCL [Concomitant]
  13. UVEDOSE (CHOLECALCIFEROL) [Concomitant]
  14. DOLIPRANE (PARACETAMOL) [Concomitant]

REACTIONS (6)
  - MALAISE [None]
  - BLOOD PRESSURE SYSTOLIC INCREASED [None]
  - HYPERHIDROSIS [None]
  - DIZZINESS [None]
  - TINNITUS [None]
  - SOMNOLENCE [None]
